FAERS Safety Report 23079266 (Version 2)
Quarter: 2023Q4

REPORT INFORMATION
  Report Type: Spontaneous
  Country: CO (occurrence: CO)
  Receive Date: 20231018
  Receipt Date: 20231228
  Transmission Date: 20240110
  Serious: Yes (Other)
  Sender: FDA-Public Use
  Company Number: CO-002147023-NVSC2019CO070097

PATIENT
  Age: 57 Year
  Sex: Female
  Weight: 59 kg

DRUGS (11)
  1. ATORVASTATIN [Suspect]
     Active Substance: ATORVASTATIN
     Indication: Blood triglycerides increased
     Dosage: 40 MG, Q24H (SINCE 8 YEARS)
     Route: 048
  2. COSENTYX [Suspect]
     Active Substance: SECUKINUMAB
     Indication: Psoriatic arthropathy
     Dosage: 300 MG, QMO
     Route: 058
     Dates: start: 20190115
  3. COSENTYX [Suspect]
     Active Substance: SECUKINUMAB
     Dosage: 300 MG, QMO
     Route: 058
     Dates: start: 20170213
  4. COSENTYX [Suspect]
     Active Substance: SECUKINUMAB
     Dosage: 300 MG, QMO
     Route: 058
     Dates: start: 20190115
  5. COSENTYX [Suspect]
     Active Substance: SECUKINUMAB
     Dosage: 300 MG, QMO  (STARTED 4 YEARS AGO)
     Route: 058
  6. COSENTYX [Suspect]
     Active Substance: SECUKINUMAB
     Dosage: UNK
     Route: 042
     Dates: start: 20221228
  7. COSENTYX [Suspect]
     Active Substance: SECUKINUMAB
     Dosage: UNK
     Route: 042
     Dates: start: 20230225
  8. LEVOTHYROXINE [Concomitant]
     Active Substance: LEVOTHYROXINE
     Dosage: 40 MG, Q24H
     Route: 048
  9. LEVOTHYROXINE [Concomitant]
     Active Substance: LEVOTHYROXINE
     Indication: Hypothyroidism
     Dosage: 50 MG, QD
     Route: 048
  10. METFORMIN [Concomitant]
     Active Substance: METFORMIN HYDROCHLORIDE
     Indication: Glucose tolerance impaired
     Dosage: 1000 MG, QD
     Route: 048
  11. ACETAMINOPHEN\TRAMADOL [Concomitant]
     Active Substance: ACETAMINOPHEN\TRAMADOL
     Indication: Pain
     Dosage: UNK (6 YEARS AGO)
     Route: 048

REACTIONS (43)
  - Thyroid cancer [Unknown]
  - Blood glucose increased [Unknown]
  - Skin haemorrhage [Unknown]
  - Pain in extremity [Unknown]
  - Abdominal pain [Unknown]
  - Burning sensation [Unknown]
  - Abdominal discomfort [Unknown]
  - Injection site bruising [Not Recovered/Not Resolved]
  - Acne [Unknown]
  - Pain [Unknown]
  - Condition aggravated [Not Recovered/Not Resolved]
  - Rash [Unknown]
  - Erythema [Unknown]
  - Skin discharge [Unknown]
  - Acne pustular [Recovered/Resolved]
  - Amnesia [Not Recovered/Not Resolved]
  - Vitamin D deficiency [Unknown]
  - Rash papular [Unknown]
  - Influenza [Recovered/Resolved]
  - Productive cough [Recovered/Resolved]
  - Nasal congestion [Recovered/Resolved]
  - Mouth breathing [Unknown]
  - Skin discolouration [Unknown]
  - Anxiety [Unknown]
  - Breast mass [Unknown]
  - Intracranial mass [Unknown]
  - Depressed mood [Unknown]
  - Malaise [Unknown]
  - Fear [Unknown]
  - Conjunctivitis allergic [Not Recovered/Not Resolved]
  - Injection site swelling [Unknown]
  - Illness [Unknown]
  - Spinal pain [Unknown]
  - Movement disorder [Unknown]
  - Influenza [Recovered/Resolved]
  - Headache [Recovered/Resolved]
  - Pyrexia [Recovered/Resolved]
  - Oropharyngeal pain [Recovered/Resolved]
  - Cough [Recovered/Resolved]
  - Puncture site pain [Recovered/Resolved]
  - Osteoarthritis [Unknown]
  - Influenza [Unknown]
  - Skin irritation [Recovered/Resolved]

NARRATIVE: CASE EVENT DATE: 20190801
